FAERS Safety Report 4807369-4 (Version None)
Quarter: 2005Q4

REPORT INFORMATION
  Report Type: 
  Country: None (occurrence: None)
  Receive Date: 20051024
  Receipt Date: 20041110
  Transmission Date: 20060501
  Serious: Yes (Hospitalization, Disabling)
  Sender: FDA-Public Use
  Company Number: US-MERCK-0411USA02399

PATIENT
  Age: 48 Year
  Sex: Male
  Weight: 93 kg

DRUGS (4)
  1. VIOXX [Suspect]
     Indication: TENDONITIS
     Route: 048
     Dates: start: 20000715, end: 20040328
  2. VIOXX [Suspect]
     Indication: BACK PAIN
     Route: 048
     Dates: start: 20000715, end: 20040328
  3. LORATADINE [Concomitant]
     Route: 065
  4. FLONASE [Concomitant]
     Route: 065

REACTIONS (14)
  - ARTHROPOD BITE [None]
  - BACTERIAL INFECTION [None]
  - CORONARY ARTERY DISEASE [None]
  - DIVERTICULITIS [None]
  - EROSIVE OESOPHAGITIS [None]
  - GASTRITIS [None]
  - HEARING DISABILITY [None]
  - HIATUS HERNIA [None]
  - HYPERCHOLESTEROLAEMIA [None]
  - HYPERTENSION [None]
  - NOCTURIA [None]
  - NON-CARDIAC CHEST PAIN [None]
  - RASH [None]
  - URTICARIA [None]
